FAERS Safety Report 6412569-6 (Version None)
Quarter: 2009Q4

REPORT INFORMATION
  Report Type: 
  Country: None (occurrence: None)
  Receive Date: 20091023
  Receipt Date: 20091019
  Transmission Date: 20100525
  Serious: Yes (Life-Threatening, Hospitalization)
  Sender: FDA-Public Use
  Company Number: DE-WYE-G04636609

PATIENT
  Sex: Female
  Weight: 79 kg

DRUGS (5)
  1. TORISEL [Suspect]
     Indication: RENAL CELL CARCINOMA
     Route: 042
     Dates: start: 20091009, end: 20091009
  2. L-THYROXIN [Concomitant]
  3. SIMVASTATIN [Concomitant]
     Route: 048
  4. CLEMASTINE FUMARATE [Concomitant]
     Indication: PREMEDICATION
     Dates: start: 20091009, end: 20091009
  5. BELOC ZOK [Concomitant]

REACTIONS (2)
  - BRAIN OEDEMA [None]
  - HEMIPARESIS [None]
